FAERS Safety Report 20619776 (Version 4)
Quarter: 2022Q2

REPORT INFORMATION
  Report Type: Spontaneous
  Country: AT (occurrence: AT)
  Receive Date: 20220322
  Receipt Date: 20220630
  Transmission Date: 20220721
  Serious: Yes (Other)
  Sender: FDA-Public Use
  Company Number: AT-CELLTRION INC.-2022AT003099

PATIENT

DRUGS (12)
  1. TRUXIMA [Suspect]
     Active Substance: RITUXIMAB-ABBS
     Indication: B-cell lymphoma refractory
     Dosage: CYCLE 1
     Dates: start: 201908, end: 201912
  2. TRUXIMA [Suspect]
     Active Substance: RITUXIMAB-ABBS
     Indication: B-cell lymphoma stage I
     Dosage: CYCLE 2
     Dates: start: 201908, end: 201912
  3. TRUXIMA [Suspect]
     Active Substance: RITUXIMAB-ABBS
     Dosage: CYCLE 3
     Dates: start: 201908, end: 201912
  4. TRUXIMA [Suspect]
     Active Substance: RITUXIMAB-ABBS
     Dosage: CYCLE 4
     Dates: start: 201908, end: 201912
  5. TRUXIMA [Suspect]
     Active Substance: RITUXIMAB-ABBS
     Dosage: CYCLE 5
     Dates: start: 201908, end: 201912
  6. TRUXIMA [Suspect]
     Active Substance: RITUXIMAB-ABBS
     Dosage: CYCLE 6
     Dates: start: 201908, end: 201912
  7. TRUXIMA [Suspect]
     Active Substance: RITUXIMAB-ABBS
     Dosage: CYCLE 1 (AS SECOND LINE TREATMENT), 2 CYCLES OF SECOND LINE THERAPY
     Route: 065
  8. TRUXIMA [Suspect]
     Active Substance: RITUXIMAB-ABBS
     Dosage: CYCLE 2 (AS SECOND LINE TREATMENT), 2 CYCLES OF SECOND LINE THERAPY
     Route: 065
  9. BENDAMUSTINE [Suspect]
     Active Substance: BENDAMUSTINE
     Indication: B-cell lymphoma refractory
     Dosage: CYCLE 1, 2 CYCLES OF SECOND LINE THERAPY
     Route: 065
  10. BENDAMUSTINE [Suspect]
     Active Substance: BENDAMUSTINE
     Indication: B-cell lymphoma stage I
     Dosage: CYCLE 2, 2 CYCLES OF SECOND LINE THERAPY
     Route: 065
  11. POLIVY [Suspect]
     Active Substance: POLATUZUMAB VEDOTIN-PIIQ
     Indication: B-cell lymphoma refractory
     Dosage: CYCLE 1, 2 CYCLES OF SECOND LINE THERAPY
     Route: 065
  12. POLIVY [Suspect]
     Active Substance: POLATUZUMAB VEDOTIN-PIIQ
     Indication: B-cell lymphoma stage I
     Dosage: CYCLE 2, 2 CYCLES OF SECOND LINE THERAPY
     Route: 065

REACTIONS (4)
  - Diffuse large B-cell lymphoma [Unknown]
  - Neutropenia [Unknown]
  - COVID-19 [Unknown]
  - Disease progression [Unknown]

NARRATIVE: CASE EVENT DATE: 20200701
